FAERS Safety Report 5151181-6 (Version None)
Quarter: 2006Q4

REPORT INFORMATION
  Report Type: 
  Country: None (occurrence: None)
  Receive Date: 20061113
  Receipt Date: 20061113
  Transmission Date: 20070319
  Serious: Yes (Other)
  Sender: FDA-Public Use
  Company Number: None

PATIENT
  Sex: Female
  Weight: 71.6683 kg

DRUGS (2)
  1. NEURONTIN [Suspect]
     Indication: NEUROPATHY
     Dosage: 600 MG BID PO
     Route: 048
     Dates: start: 20060524
  2. HYDROCHLOROTHIAZIDE [Suspect]
     Dosage: 25 Q/DAY PO (PRIOR ON 100MG)
     Route: 048

REACTIONS (1)
  - NAIL DISORDER [None]
